FAERS Safety Report 15576751 (Version 1)
Quarter: 2018Q4

REPORT INFORMATION
  Report Type: Report from Study
  Country: None (occurrence: US)
  Receive Date: 20181101
  Receipt Date: 20181101
  Transmission Date: 20190205
  Serious: Yes (Hospitalization, Other)
  Sender: FDA-Public Use
  Company Number: US-ABBVIE-18K-163-2460632-00

PATIENT
  Age: 63 Year
  Sex: Female
  Weight: 63.56 kg

DRUGS (4)
  1. VITAMIN D [Concomitant]
     Active Substance: CHOLECALCIFEROL
     Indication: VITAMIN SUPPLEMENTATION
  2. HUMIRA [Suspect]
     Active Substance: ADALIMUMAB
     Indication: PSORIASIS
  3. HUMIRA [Suspect]
     Active Substance: ADALIMUMAB
     Indication: RHEUMATOID ARTHRITIS
     Route: 058
     Dates: start: 2008
  4. ALPRAZOLAM. [Concomitant]
     Active Substance: ALPRAZOLAM
     Indication: ANXIETY

REACTIONS (15)
  - Deafness [Not Recovered/Not Resolved]
  - Tonsil cancer [Recovered/Resolved]
  - Amnesia [Not Recovered/Not Resolved]
  - Back pain [Not Recovered/Not Resolved]
  - Head injury [Recovered/Resolved]
  - Fall [Not Recovered/Not Resolved]
  - Asthenia [Recovered/Resolved]
  - Weight decreased [Recovered/Resolved]
  - Anaemia [Recovered/Resolved]
  - Tonsil cancer [Recovered/Resolved]
  - Salivary gland disorder [Not Recovered/Not Resolved]
  - Loss of personal independence in daily activities [Recovered/Resolved]
  - Teeth brittle [Not Recovered/Not Resolved]
  - Atrophic glossitis [Not Recovered/Not Resolved]
  - Oropharyngeal pain [Recovered/Resolved]

NARRATIVE: CASE EVENT DATE: 2011
